FAERS Safety Report 25155594 (Version 1)
Quarter: 2025Q2

REPORT INFORMATION
  Report Type: Spontaneous
  Country: US (occurrence: US)
  Receive Date: 20250403
  Receipt Date: 20250403
  Transmission Date: 20250716
  Serious: Yes (Other)
  Sender: ALEXION PHARMACEUTICALS
  Company Number: US-AstraZeneca-CH-00837301AP

PATIENT

DRUGS (1)
  1. BUDESONIDE\FORMOTEROL [Suspect]
     Active Substance: BUDESONIDE\FORMOTEROL

REACTIONS (5)
  - Cataract [Unknown]
  - Bradykinesia [Unknown]
  - Nasopharyngitis [Unknown]
  - Product delivery mechanism issue [Unknown]
  - Product dose omission issue [Unknown]
